FAERS Safety Report 5602879-4 (Version None)
Quarter: 2008Q1

REPORT INFORMATION
  Report Type: 
  Country: None (occurrence: None)
  Receive Date: 20080125
  Receipt Date: 20080123
  Transmission Date: 20080703
  Serious: No
  Sender: FDA-Public Use
  Company Number: US-BOEHRINGER INGELHEIM PHARMACEUTICALS, INC.-2007-BP-21732BP

PATIENT
  Age: 64 Year
  Sex: Male

DRUGS (5)
  1. FLOMAX [Suspect]
     Indication: BENIGN PROSTATIC HYPERPLASIA
     Route: 048
     Dates: start: 20040101, end: 20070821
  2. AVALIDE [Concomitant]
  3. LIPITOR [Concomitant]
  4. TOPROL-XL [Concomitant]
  5. ASPIRIN [Concomitant]

REACTIONS (4)
  - ANORGASMIA [None]
  - CONDITION AGGRAVATED [None]
  - EJACULATION FAILURE [None]
  - SEMEN VOLUME DECREASED [None]
